FAERS Safety Report 8553879-6 (Version None)
Quarter: 2012Q3

REPORT INFORMATION
  Report Type: 
  Country: None (occurrence: None)
  Receive Date: 20120731
  Receipt Date: 20120711
  Transmission Date: 20120928
  Serious: Yes (Hospitalization, Other)
  Sender: FDA-Public Use
  Company Number: US-009507513-1104USA02929

PATIENT

DRUGS (4)
  1. FOSAMAX [Suspect]
     Indication: OSTEOPENIA
     Dosage: 35 MG, UNK
     Route: 048
     Dates: start: 20060827, end: 20070516
  2. LIPITOR [Concomitant]
     Indication: BLOOD CHOLESTEROL INCREASED
     Dosage: UNK
     Route: 048
     Dates: start: 20000901
  3. FOSAMAX PLUS D [Suspect]
     Dosage: 70 MG, UNK
     Route: 048
     Dates: start: 20070516, end: 20090203
  4. FOSAMAX PLUS D [Suspect]
     Dosage: 70 MG, UNK
     Route: 048
     Dates: start: 20090406, end: 20100201

REACTIONS (22)
  - HYPERTENSION [None]
  - SPINAL OSTEOARTHRITIS [None]
  - COLONOSCOPY [None]
  - POLYMYALGIA RHEUMATICA [None]
  - SURGERY [None]
  - DYSPEPSIA [None]
  - ANXIETY [None]
  - EYE DISORDER [None]
  - NAUSEA [None]
  - DEPRESSION [None]
  - TRANSIENT ISCHAEMIC ATTACK [None]
  - VITAMIN D DECREASED [None]
  - OSTEONECROSIS [None]
  - HYPOTHYROIDISM [None]
  - INSOMNIA [None]
  - FEMUR FRACTURE [None]
  - BIOPSY ARTERY [None]
  - VERTIGO [None]
  - MEDICAL DEVICE REMOVAL [None]
  - PAIN [None]
  - CATARACT OPERATION [None]
  - DIVERTICULITIS [None]
